FAERS Safety Report 9319352 (Version 1)
Quarter: 2013Q2

REPORT INFORMATION
  Report Type: Spontaneous
  Country: US (occurrence: None)
  Receive Date: 20130520
  Receipt Date: 20130520
  Transmission Date: 20140414
  Serious: Yes (Hospitalization, Disabling, Other)
  Sender: FDA-Public Use
  Company Number: 2013PROUSA02795

PATIENT
  Age: 78 Year
  Sex: Male
  Weight: 90.7 kg

DRUGS (5)
  1. PROVENGE (SIPULEUCEL-T) SUSPENSION, 250ML [Suspect]
     Indication: PROSTATE CANCER METASTATIC
     Route: 042
     Dates: start: 20130405, end: 20130405
  2. ALEVE [Suspect]
  3. CASODEX (BICALUTAMIDE) [Concomitant]
  4. NORVASC (AMLODIPINE BESILATE) [Concomitant]
  5. LUPRON (LEUPRORELIN ACETATE) [Concomitant]

REACTIONS (21)
  - Renal failure acute [None]
  - Urinary tract infection [None]
  - Spinal cord compression [None]
  - Rectal ulcer [None]
  - Skin hypertrophy [None]
  - Cough [None]
  - Diarrhoea [None]
  - Back pain [None]
  - Arthralgia [None]
  - Confusional state [None]
  - Dehydration [None]
  - Iron deficiency anaemia [None]
  - Decreased appetite [None]
  - Hypophagia [None]
  - Weight decreased [None]
  - Intervertebral disc degeneration [None]
  - Walking aid user [None]
  - Escherichia test positive [None]
  - Shigella test positive [None]
  - Shigella test positive [None]
  - Shigella test positive [None]
